FAERS Safety Report 6955636-0 (Version None)
Quarter: 2010Q3

REPORT INFORMATION
  Report Type: 
  Country: None (occurrence: None)
  Receive Date: 20100830
  Receipt Date: 20100820
  Transmission Date: 20110219
  Serious: Yes (Hospitalization)
  Sender: FDA-Public Use
  Company Number: US-PFIZER INC-2010105255

PATIENT
  Age: 76 Year
  Sex: Female
  Weight: 60.33 kg

DRUGS (9)
  1. *NO SUBJECT DRUG [Suspect]
     Indication: BREAST CANCER
     Dosage: NO DOSE GIVEN
  2. ARIMIDEX [Suspect]
     Indication: BREAST CANCER
     Dosage: 1 MG, 1X/DAY
     Dates: start: 20051213, end: 20100816
  3. NORVASC [Suspect]
  4. CHANTIX [Suspect]
  5. SPIRIVA [Suspect]
  6. DIGOXIN [Suspect]
  7. COREG [Suspect]
  8. IMDUR [Suspect]
  9. FORTEO [Suspect]

REACTIONS (2)
  - LEFT VENTRICULAR DYSFUNCTION [None]
  - MYOCARDIAL ISCHAEMIA [None]
